FAERS Safety Report 8576766 (Version 5)
Quarter: 2015Q2

REPORT INFORMATION
  Report Type: Report from Study
  Country: US (occurrence: US)
  Receive Date: 20120523
  Receipt Date: 20150507
  Transmission Date: 20150821
  Serious: Yes (Hospitalization)
  Sender: FDA-Public Use
  Company Number: US-UCBSA-055999

PATIENT
  Age: 8 Year
  Sex: Male
  Weight: 20.7 kg

DRUGS (13)
  1. KEPPRA [Concomitant]
     Active Substance: LEVETIRACETAM
     Dosage: 500 MG, 3X/DAY (TID)
     Dates: start: 20120204, end: 20120216
  2. KEPPRA [Concomitant]
     Active Substance: LEVETIRACETAM
     Dosage: 400 MG, 3X/DAY (TID)
     Dates: start: 20120217, end: 20120301
  3. INTUNIV [Concomitant]
     Active Substance: GUANFACINE HYDROCHLORIDE
     Indication: IMPULSIVE BEHAVIOUR
     Dosage: ONCE IN THE EVENING
     Route: 048
     Dates: start: 20120315
  4. LAMICTAL [Concomitant]
     Active Substance: LAMOTRIGINE
     Indication: SEIZURE
     Dosage: 50 MG, 2X/DAY (BID)
     Route: 048
  5. LACOSAMIDE EP [Suspect]
     Active Substance: LACOSAMIDE
     Indication: PARTIAL SEIZURES
     Dosage: 10 MG/KG, ONCE DAILY (QD)
     Route: 048
     Dates: start: 20110322, end: 20120426
  6. KEPPRA [Concomitant]
     Active Substance: LEVETIRACETAM
     Dosage: 300 MG, 3X/DAY (TID)
     Dates: start: 20120302, end: 20120315
  7. KEPPRA [Concomitant]
     Active Substance: LEVETIRACETAM
     Dosage: 200 MG, 3X/DAY (TID)
     Dates: start: 20120316, end: 20120319
  8. LACOSAMIDE EP [Suspect]
     Active Substance: LACOSAMIDE
     Dosage: 110 MG, 2X/DAY (BID)
     Route: 048
     Dates: start: 201204, end: 2012
  9. KEPPRA [Concomitant]
     Active Substance: LEVETIRACETAM
     Indication: SEIZURE
     Dosage: 600 MG, 3X/DAY (TID)
     Dates: start: 20080506, end: 20120202
  10. KEPPRA [Concomitant]
     Active Substance: LEVETIRACETAM
     Dosage: 600 MG IN AM AND MID, 500 MG AT PM
     Dates: start: 20120203, end: 20120203
  11. KEPPRA [Concomitant]
     Active Substance: LEVETIRACETAM
     Dosage: 100 MG, 3X/DAY (TID)
     Dates: start: 20120320, end: 20120412
  12. LACOSAMIDE EP [Suspect]
     Active Substance: LACOSAMIDE
     Dosage: 100 MG, 2X/DAY (BID)
     Route: 048
     Dates: start: 20121029, end: 20121213
  13. TRILEPTAL [Concomitant]
     Active Substance: OXCARBAZEPINE
     Indication: SEIZURE
     Dosage: 300 MG, 3X/DAY (TID)
     Route: 048
     Dates: start: 20060120

REACTIONS (1)
  - Seizure [Recovered/Resolved]

NARRATIVE: CASE EVENT DATE: 20120419
